FAERS Safety Report 8847211 (Version 1)
Quarter: 2012Q4

REPORT INFORMATION
  Report Type: 
  Country: CH (occurrence: CH)
  Receive Date: 20121018
  Receipt Date: 20121018
  Transmission Date: 20130627
  Serious: Yes (Life-Threatening, Hospitalization, Disabling)
  Sender: FDA-Public Use
  Company Number: CH-BAYER-2012-105371

PATIENT
  Age: 43 Year
  Sex: Female

DRUGS (3)
  1. YASMIN [Suspect]
     Indication: CONTRACEPTION
     Dosage: 1 DF, QD
     Route: 048
     Dates: end: 20120607
  2. PARACETAMOL [Concomitant]
  3. IBUPROFEN BAYER [Concomitant]

REACTIONS (3)
  - Cerebral venous thrombosis [Not Recovered/Not Resolved]
  - Haemorrhagic stroke [Not Recovered/Not Resolved]
  - Altered state of consciousness [Not Recovered/Not Resolved]
